FAERS Safety Report 13956150 (Version 1)
Quarter: 2017Q3

REPORT INFORMATION
  Report Type: Spontaneous
  Country: DE (occurrence: DE)
  Receive Date: 20170911
  Receipt Date: 20170911
  Transmission Date: 20171128
  Serious: Yes (Hospitalization, Other)
  Sender: FDA-Public Use
  Company Number: DE-AMGEN-DEUSP2017137449

PATIENT
  Sex: Male

DRUGS (53)
  1. PEGFILGRASTIM [Suspect]
     Active Substance: PEGFILGRASTIM
     Dosage: 6 MG, UNK
     Route: 058
     Dates: start: 20130406, end: 20130406
  2. PEGFILGRASTIM [Suspect]
     Active Substance: PEGFILGRASTIM
     Dosage: 6 MG, ONE TIME DOSE (1 IN 1 D)
     Route: 058
     Dates: start: 20130606, end: 20130606
  3. DOXORUBICINE [Suspect]
     Active Substance: DOXORUBICIN
     Indication: B-CELL LYMPHOMA
     Dosage: 99.5 MG, QD
     Route: 042
     Dates: start: 20130312, end: 20130312
  4. DOXORUBICINE [Suspect]
     Active Substance: DOXORUBICIN
     Dosage: 99.5 MG, QD
     Route: 042
     Dates: start: 20130403, end: 20130403
  5. DOXORUBICINE [Suspect]
     Active Substance: DOXORUBICIN
     Dosage: 92 MG, QD
     Route: 042
     Dates: start: 20130605, end: 20130605
  6. SULFAMETHOXAZOLE AND TRIMETHOPRIM [Concomitant]
     Active Substance: SULFAMETHOXAZOLE\TRIMETHOPRIM
     Dosage: 250 MG, QD (1 IN 1D)
     Route: 048
     Dates: start: 20130225
  7. AMPHOTERICIN B. [Concomitant]
     Active Substance: AMPHOTERICIN B
     Indication: INFECTION PROPHYLAXIS
     Dosage: 1 DF, TID (1 PIPETTE)
     Route: 048
     Dates: start: 20130318, end: 20130319
  8. METFORMIN [Concomitant]
     Active Substance: METFORMIN HYDROCHLORIDE
     Indication: DIABETES MELLITUS
     Dosage: 1 G, QD
  9. CYCLOPHOSPHAMIDE. [Suspect]
     Active Substance: CYCLOPHOSPHAMIDE
     Indication: B-CELL LYMPHOMA
     Dosage: 1492.5 MG, QD
     Route: 042
     Dates: start: 20130312, end: 20130312
  10. DOXORUBICINE [Suspect]
     Active Substance: DOXORUBICIN
     Dosage: 94 MG, QD
     Route: 042
     Dates: start: 20130515, end: 20130515
  11. DOXORUBICINE [Suspect]
     Active Substance: DOXORUBICIN
     Dosage: 100 MG, Q2WK
     Route: 042
     Dates: start: 20130814
  12. VALACICLOVIR [Concomitant]
     Active Substance: VALACYCLOVIR HYDROCHLORIDE
     Indication: INFECTION PROPHYLAXIS
     Dosage: 400 MG, QID
     Route: 048
  13. PANTOPRAZOLE SODIUM. [Concomitant]
     Active Substance: PANTOPRAZOLE SODIUM
     Indication: PROPHYLAXIS AGAINST GASTROINTESTINAL ULCER
     Dosage: 40 MG, QD
     Route: 048
     Dates: start: 20130225
  14. DALTEPARIN SODIUM [Concomitant]
     Active Substance: DALTEPARIN SODIUM
     Indication: PROPHYLAXIS
     Dosage: 5000 IU, QD
     Route: 058
     Dates: start: 201307
  15. THEOPHYLLIN [Concomitant]
     Active Substance: THEOPHYLLINE ANHYDROUS
     Indication: ASTHMA
     Dosage: 850 MG, QD (1 IN 1 D)
     Route: 048
  16. CYCLOPHOSPHAMIDE. [Suspect]
     Active Substance: CYCLOPHOSPHAMIDE
     Dosage: 1410 MG, QD
     Route: 042
     Dates: start: 20130515, end: 20130515
  17. CYCLOPHOSPHAMIDE. [Suspect]
     Active Substance: CYCLOPHOSPHAMIDE
     Dosage: 1500 MG, Q2WK
     Route: 042
     Dates: start: 20130814
  18. DOXORUBICINE [Suspect]
     Active Substance: DOXORUBICIN
     Dosage: 99.5 MG, Q2WK
     Route: 042
  19. VINCRISTINE [Suspect]
     Active Substance: VINCRISTINE
     Dosage: 1 MG, QD
     Route: 042
     Dates: start: 20130605, end: 20130605
  20. VINCRISTINE [Suspect]
     Active Substance: VINCRISTINE
     Dosage: 2 MG, Q2WK
     Route: 042
  21. VALACICLOVIR [Concomitant]
     Active Substance: VALACYCLOVIR HYDROCHLORIDE
     Dosage: 500 MG, BID (100 MG)
     Route: 048
  22. LEVOFLOXACIN. [Concomitant]
     Active Substance: LEVOFLOXACIN
     Indication: INFECTION PROPHYLAXIS
     Dosage: 500 MG, BID (2 IN 1 D)
     Route: 048
     Dates: start: 20130317
  23. LEVOTHYROXINE SODIUM. [Concomitant]
     Active Substance: LEVOTHYROXINE SODIUM
     Dosage: 50 MG, QD
     Route: 048
     Dates: start: 20130225
  24. HYDROCHLOROTHIAZIDE W/RAMIPRIL [Concomitant]
     Active Substance: HYDROCHLOROTHIAZIDE\RAMIPRIL
     Indication: HYPERTENSION
     Dosage: 5 MG, QD
     Route: 048
  25. FLUDROCORTISONE [Concomitant]
     Active Substance: FLUDROCORTISONE
     Indication: ASTHMA
     Dosage: 1 MG, QD (1 IN 1 D)
     Route: 048
  26. PEGFILGRASTIM [Suspect]
     Active Substance: PEGFILGRASTIM
     Indication: B-CELL LYMPHOMA
     Dosage: 6 MG, UNK
     Route: 058
     Dates: start: 20130315, end: 20130315
  27. VINCRISTINE [Suspect]
     Active Substance: VINCRISTINE
     Dosage: 2 MG, QD
     Route: 042
     Dates: start: 20130403, end: 20130403
  28. PREDNISONE. [Suspect]
     Active Substance: PREDNISONE
     Dosage: 100 MG, UNK (CYCLE 1, DAY 1 TO 5 FOR 5 DAYS)
     Route: 048
  29. RITUXIMAB. [Suspect]
     Active Substance: RITUXIMAB
     Dosage: 746 MG, ONE TIME DOSE
     Route: 042
     Dates: start: 20130402, end: 20130402
  30. RITUXIMAB. [Suspect]
     Active Substance: RITUXIMAB
     Dosage: 697 MG, ONE TIME DOSE
     Route: 042
     Dates: start: 20130514, end: 20130514
  31. CYCLOPHOSPHAMIDE. [Suspect]
     Active Substance: CYCLOPHOSPHAMIDE
     Dosage: 1492.5 MG, QD
     Route: 042
     Dates: start: 20130403, end: 20130403
  32. PREDNISONE. [Suspect]
     Active Substance: PREDNISONE
     Indication: B-CELL LYMPHOMA
     Dosage: 100 MG, QD (1 IN 1 D)
     Route: 065
     Dates: start: 20130313, end: 20130317
  33. PREDNISONE. [Suspect]
     Active Substance: PREDNISONE
     Dosage: 575 MG, QD (1 IN 7 D)
     Route: 048
     Dates: start: 20130808, end: 20130814
  34. CYCLOPHOSPHAMIDE. [Suspect]
     Active Substance: CYCLOPHOSPHAMIDE
     Dosage: 1380 MG, QD
     Route: 042
     Dates: start: 20130605, end: 20130605
  35. VINCRISTINE [Suspect]
     Active Substance: VINCRISTINE
     Indication: B-CELL LYMPHOMA
     Dosage: 2 MG, QD
     Route: 042
     Dates: start: 20130312, end: 20130312
  36. PREDNISONE. [Suspect]
     Active Substance: PREDNISONE
     Dosage: UNK (D 1-5: 100 MG, D 6-8: 50 MG, D 8-11: 25 MG)
     Route: 048
     Dates: start: 20130403, end: 20130414
  37. MIRTAZAPINE. [Concomitant]
     Active Substance: MIRTAZAPINE
     Indication: DEPRESSION
     Dosage: 15 MG, QD (1 IN 1 D)
     Route: 048
  38. LEVOTHYROXINE SODIUM. [Concomitant]
     Active Substance: LEVOTHYROXINE SODIUM
     Indication: HYPOTHYROIDISM
     Dosage: 25 MUG, QD
     Route: 048
  39. HYDROCORTISONE. [Concomitant]
     Active Substance: HYDROCORTISONE
     Dosage: 20 MG, UNK
     Route: 048
     Dates: start: 20130906
  40. RITUXIMAB. [Suspect]
     Active Substance: RITUXIMAB
     Dosage: 746 MG, Q2WK (CYCLE 1)
     Route: 042
  41. THEOPHYLLIN [Concomitant]
     Active Substance: THEOPHYLLINE ANHYDROUS
     Dosage: 500 MG, QD (1 IN 1 D)
  42. PEGFILGRASTIM [Suspect]
     Active Substance: PEGFILGRASTIM
     Dosage: 6 MG, UNK (ON DAY 4 OF EVERY CYCLE)
     Route: 058
     Dates: start: 20130816
  43. RITUXIMAB. [Suspect]
     Active Substance: RITUXIMAB
     Indication: B-CELL LYMPHOMA
     Dosage: 746 MG, ONE TIME DOSE
     Route: 042
     Dates: start: 20130311, end: 20130311
  44. RITUXIMAB. [Suspect]
     Active Substance: RITUXIMAB
     Dosage: 675 MG, ONE TIME DOSE
     Route: 042
     Dates: start: 20130604, end: 20130604
  45. RITUXIMAB. [Suspect]
     Active Substance: RITUXIMAB
     Dosage: 750 MG, Q2WK
     Route: 042
     Dates: start: 20130813
  46. CYCLOPHOSPHAMIDE. [Suspect]
     Active Substance: CYCLOPHOSPHAMIDE
     Dosage: 1492.5 MG, Q2WK (1 IN 2 WEEKS)
     Route: 042
  47. VINCRISTINE [Suspect]
     Active Substance: VINCRISTINE
     Dosage: 1 MG, QD (1 IN 1 D)
     Route: 042
     Dates: start: 20130515, end: 20130515
  48. VINCRISTINE [Suspect]
     Active Substance: VINCRISTINE
     Dosage: 1 MG, Q2WK
     Route: 042
     Dates: start: 20130814
  49. PREDNISONE. [Suspect]
     Active Substance: PREDNISONE
     Dosage: 100 MG, QD (1 IN 1 D)
     Route: 048
     Dates: start: 20130605, end: 20130609
  50. SULFAMETHOXAZOLE AND TRIMETHOPRIM [Concomitant]
     Active Substance: SULFAMETHOXAZOLE\TRIMETHOPRIM
     Indication: INFECTION PROPHYLAXIS
     Dosage: 960 MG, 2 TIMES/WK
     Route: 048
  51. DIPYRONE [Concomitant]
     Active Substance: DIPYRONE
     Indication: PAIN
     Dosage: 500 MG, AS NECESSARY
     Route: 048
     Dates: start: 20130730
  52. HYDROCORTISONE. [Concomitant]
     Active Substance: HYDROCORTISONE
     Indication: ADRENAL INSUFFICIENCY
     Dosage: 10 MG, QD (1 IN 1 D)
     Route: 048
     Dates: start: 20130730
  53. LEVOTHYROXINUM NATRICUM [Concomitant]
     Dosage: 100 MG, QD (1 IN 1 D)
     Route: 048
     Dates: start: 20130730

REACTIONS (5)
  - Febrile infection [Recovered/Resolved]
  - Neutropenia [Recovered/Resolved]
  - Febrile neutropenia [Recovered/Resolved]
  - Febrile neutropenia [Recovered/Resolved]
  - Pneumothorax [Recovered/Resolved]

NARRATIVE: CASE EVENT DATE: 20130319
